FAERS Safety Report 4903361-X (Version None)
Quarter: 2006Q1

REPORT INFORMATION
  Report Type: 
  Country: None (occurrence: None)
  Receive Date: 20060208
  Receipt Date: 20060130
  Transmission Date: 20060701
  Serious: Yes (Other)
  Sender: FDA-Public Use
  Company Number: US-JNJFOC-20050904278

PATIENT
  Sex: Female
  Weight: 86.64 kg

DRUGS (3)
  1. REMICADE [Suspect]
     Indication: ARTHRITIS
     Route: 042
  2. REMICADE [Suspect]
     Indication: CROHN'S DISEASE
     Route: 042
  3. SULFASALAZINE [Concomitant]
     Indication: CROHN'S DISEASE

REACTIONS (7)
  - ARTHRALGIA [None]
  - ARTHRITIS [None]
  - LOSS OF CONSCIOUSNESS [None]
  - MALAISE [None]
  - MYOSITIS [None]
  - PAIN [None]
  - URTICARIA [None]
